FAERS Safety Report 18403198 (Version 1)
Quarter: 2020Q4

REPORT INFORMATION
  Report Type: Spontaneous
  Country: TR (occurrence: TR)
  Receive Date: 20201019
  Receipt Date: 20201019
  Transmission Date: 20210114
  Serious: Yes (Hospitalization)
  Sender: FDA-Public Use
  Company Number: TR-ROCHE-2693764

PATIENT
  Age: 75 Year
  Sex: Male
  Weight: 73 kg

DRUGS (2)
  1. ALTUZAN [Suspect]
     Active Substance: BEVACIZUMAB
     Indication: DIABETIC RETINOPATHY
  2. ALTUZAN [Suspect]
     Active Substance: BEVACIZUMAB
     Indication: MACULAR OEDEMA
     Dosage: 1.25MG/0.05ML
     Route: 050
     Dates: start: 20200918, end: 20200918

REACTIONS (7)
  - Conjunctival hyperaemia [Recovering/Resolving]
  - Anterior chamber degeneration [Recovering/Resolving]
  - Intentional product use issue [Unknown]
  - Vitreous abscess [Recovering/Resolving]
  - Off label use [Unknown]
  - Ciliary hyperaemia [Recovering/Resolving]
  - Hypopyon [Recovering/Resolving]

NARRATIVE: CASE EVENT DATE: 20200919
